FAERS Safety Report 7822081-5 (Version None)
Quarter: 2011Q4

REPORT INFORMATION
  Report Type: 
  Country: None (occurrence: None)
  Receive Date: 20111018
  Receipt Date: 20111014
  Transmission Date: 20120403
  Serious: Yes (Death, Hospitalization)
  Sender: FDA-Public Use
  Company Number: US-ASTRAZENECA-2011SE61968

PATIENT
  Age: 72 Year
  Sex: Male

DRUGS (2)
  1. TRICOR [Concomitant]
  2. SYMBICORT [Suspect]
     Route: 055

REACTIONS (1)
  - LUNG NEOPLASM MALIGNANT [None]
